FAERS Safety Report 4477800-5 (Version None)
Quarter: 2004Q4

REPORT INFORMATION
  Report Type: 
  Country: None (occurrence: None)
  Receive Date: 20041018
  Receipt Date: 20040922
  Transmission Date: 20050328
  Serious: Yes (Other)
  Sender: FDA-Public Use
  Company Number: US-MERCK-0409USA01941

PATIENT

DRUGS (2)
  1. LIPITOR [Concomitant]
     Route: 065
  2. ZETIA [Suspect]
     Route: 048

REACTIONS (1)
  - CORONARY ARTERY DISEASE [None]
